FAERS Safety Report 10430641 (Version 1)
Quarter: 2014Q3

REPORT INFORMATION
  Report Type: Spontaneous
  Country: FR (occurrence: FR)
  Receive Date: 20140904
  Receipt Date: 20140904
  Transmission Date: 20150326
  Serious: Yes (Hospitalization, Other)
  Sender: FDA-Public Use
  Company Number: FR-TEVA-504996ISR

PATIENT
  Sex: Female

DRUGS (3)
  1. ALPRAZOLAM 0.25 MG ISOMED [Suspect]
     Active Substance: ALPRAZOLAM
     Dosage: .25 MILLIGRAM DAILY;
     Dates: start: 201308
  2. ALPRAZOLAM 0.25 MG ISOMED [Suspect]
     Active Substance: ALPRAZOLAM
     Dosage: 4 OR 5 TABLETS IN 1 INTAKE
     Dates: start: 20140511
  3. FLUOXETINE [Suspect]
     Active Substance: FLUOXETINE\FLUOXETINE HYDROCHLORIDE
     Dates: start: 20140511

REACTIONS (5)
  - Mucosal dryness [Unknown]
  - Suicide attempt [Unknown]
  - Drug withdrawal syndrome [Unknown]
  - Weight decreased [Unknown]
  - Mental disorder [Unknown]

NARRATIVE: CASE EVENT DATE: 20140511
